FAERS Safety Report 11310191 (Version 2)
Quarter: 2015Q3

REPORT INFORMATION
  Report Type: Spontaneous
  Country: JP (occurrence: JP)
  Receive Date: 20150724
  Receipt Date: 20150811
  Transmission Date: 20151125
  Serious: Yes (Hospitalization, Other)
  Sender: FDA-Public Use
  Company Number: JP-NOVOPROD-440716

PATIENT
  Age: 71 Year
  Sex: Male

DRUGS (5)
  1. NOVORAPID [Suspect]
     Active Substance: INSULIN ASPART
     Indication: TYPE 2 DIABETES MELLITUS
     Dosage: 14 U, QD
     Route: 058
     Dates: start: 20121220, end: 20130522
  2. NOVORAPID [Suspect]
     Active Substance: INSULIN ASPART
     Dosage: THREE TIMES A DAY
     Route: 058
     Dates: start: 20130523, end: 20130602
  3. LEVEMIR [Suspect]
     Active Substance: INSULIN DETEMIR
     Indication: TYPE 2 DIABETES MELLITUS
     Dosage: 3 TO 4IU/DAY
     Route: 058
     Dates: start: 20121211, end: 20121219
  4. NOVORAPID [Suspect]
     Active Substance: INSULIN ASPART
     Indication: TYPE 2 DIABETES MELLITUS
     Dosage: 8 TO 46IU/DAY
     Route: 058
     Dates: start: 20121214, end: 20121220
  5. LEVEMIR [Suspect]
     Active Substance: INSULIN DETEMIR
     Dosage: UNK
     Route: 058
     Dates: start: 20130523, end: 20130529

REACTIONS (3)
  - Hypoglycaemia [Recovered/Resolved]
  - Cardiac failure congestive [Unknown]
  - Anti-insulin antibody positive [Recovering/Resolving]

NARRATIVE: CASE EVENT DATE: 20130522
